FAERS Safety Report 23570675 (Version 1)
Quarter: 2024Q1

REPORT INFORMATION
  Report Type: Spontaneous
  Country: US (occurrence: None)
  Receive Date: 20240226
  Receipt Date: 20240226
  Transmission Date: 20240409
  Serious: Yes (Death)
  Sender: FDA-Public Use
  Company Number: None

PATIENT
  Age: 87 Year
  Sex: Male

DRUGS (1)
  1. VYNDAMAX [Suspect]
     Active Substance: TAFAMIDIS
     Indication: Amyloidosis
     Dosage: 610 MG  1 TIME A DAY BY MOUTH
     Route: 048
     Dates: start: 202401

REACTIONS (1)
  - Death [None]

NARRATIVE: CASE EVENT DATE: 20240216
